FAERS Safety Report 21760564 (Version 1)
Quarter: 2022Q4

REPORT INFORMATION
  Report Type: Spontaneous
  Country: US (occurrence: None)
  Receive Date: 20221220
  Receipt Date: 20221220
  Transmission Date: 20230112
  Serious: No
  Sender: FDA-Public Use
  Company Number: None

PATIENT
  Age: 76 Year
  Sex: Male
  Weight: 124 kg

DRUGS (1)
  1. TECHNETIUM TC-99M [Suspect]
     Active Substance: TECHNETIUM TC-99M
     Indication: Positron emission tomogram
     Dates: start: 20220914, end: 20220914

REACTIONS (9)
  - Respiratory distress [None]
  - Contrast media allergy [None]
  - Swelling face [None]
  - Heart rate increased [None]
  - Anaphylactic shock [None]
  - Acute myocardial infarction [None]
  - Cardio-respiratory arrest [None]
  - Atrial fibrillation [None]
  - Atrial flutter [None]

NARRATIVE: CASE EVENT DATE: 20220914
